FAERS Safety Report 8461984-8 (Version None)
Quarter: 2012Q2

REPORT INFORMATION
  Report Type: 
  Country: None (occurrence: None)
  Receive Date: 20120625
  Receipt Date: 20120615
  Transmission Date: 20120825
  Serious: Yes (Hospitalization)
  Sender: FDA-Public Use
  Company Number: US-JNJFOC-20120609890

PATIENT
  Sex: Male
  Weight: 65.77 kg

DRUGS (3)
  1. COGENTIN [Suspect]
     Indication: PRODUCT USED FOR UNKNOWN INDICATION
     Route: 065
  2. INVEGA [Suspect]
     Route: 048
     Dates: start: 20100101
  3. INVEGA [Suspect]
     Indication: SCHIZOPHRENIA
     Route: 048
     Dates: start: 20120604, end: 20120604

REACTIONS (9)
  - PAIN [None]
  - DEPRESSION [None]
  - HEADACHE [None]
  - ANXIETY [None]
  - SENSORY DISTURBANCE [None]
  - THINKING ABNORMAL [None]
  - TRISMUS [None]
  - MUSCLE TIGHTNESS [None]
  - SWOLLEN TONGUE [None]
